FAERS Safety Report 4800115-X (Version None)
Quarter: 2005Q4

REPORT INFORMATION
  Report Type: 
  Country: None (occurrence: None)
  Receive Date: 20051017
  Receipt Date: 20051013
  Transmission Date: 20060501
  Serious: Yes (Hospitalization, Other)
  Sender: FDA-Public Use
  Company Number: US-GLAXOSMITHKLINE-A0578157A

PATIENT
  Age: 31 Year
  Sex: Female

DRUGS (5)
  1. LAMICTAL [Suspect]
     Dosage: 150MG THREE TIMES PER DAY
     Route: 048
     Dates: start: 19950101
  2. TEGRETOL [Concomitant]
  3. PHENOBARBITAL TAB [Concomitant]
  4. ZANTAC [Concomitant]
  5. MIRALAX [Concomitant]

REACTIONS (4)
  - ABDOMINAL DISCOMFORT [None]
  - CHEST DISCOMFORT [None]
  - MUSCLE TIGHTNESS [None]
  - MUSCULOSKELETAL STIFFNESS [None]
